FAERS Safety Report 18264554 (Version 1)
Quarter: 2020Q3

REPORT INFORMATION
  Report Type: Report from Study
  Country: BR (occurrence: BR)
  Receive Date: 20200914
  Receipt Date: 20200914
  Transmission Date: 20201103
  Serious: Yes (Death)
  Sender: FDA-Public Use
  Company Number: PHHY2019BR103854

PATIENT
  Sex: Female

DRUGS (1)
  1. COSENTYX [Suspect]
     Active Substance: SECUKINUMAB
     Indication: PRODUCT USED FOR UNKNOWN INDICATION
     Dosage: 300 MG, UNK
     Route: 065

REACTIONS (6)
  - Hypokinesia [Unknown]
  - Peripheral swelling [Unknown]
  - Gait disturbance [Unknown]
  - Product administration error [Unknown]
  - Death [Fatal]
  - Joint swelling [Unknown]

NARRATIVE: CASE EVENT DATE: 2019
